FAERS Safety Report 15431644 (Version 1)
Quarter: 2018Q3

REPORT INFORMATION
  Report Type: Spontaneous
  Country: CA (occurrence: CA)
  Receive Date: 20180926
  Receipt Date: 20180926
  Transmission Date: 20181010
  Serious: Yes (Other)
  Sender: FDA-Public Use
  Company Number: CA-ASTRAZENECA-2018SF16881

PATIENT
  Age: 8 Year
  Sex: Female

DRUGS (1)
  1. SYMBICORT [Suspect]
     Active Substance: BUDESONIDE\FORMOTEROL FUMARATE DIHYDRATE
     Dosage: 200 MCG, 2 INHALATIONS TWO TIMES A DAY
     Route: 055
     Dates: start: 20180720

REACTIONS (3)
  - Drug ineffective [Recovered/Resolved]
  - Disease progression [Unknown]
  - Device defective [Unknown]

NARRATIVE: CASE EVENT DATE: 20180831
